FAERS Safety Report 25424985 (Version 1)
Quarter: 2025Q2

REPORT INFORMATION
  Report Type: Spontaneous
  Country: DK (occurrence: DK)
  Receive Date: 20250611
  Receipt Date: 20250611
  Transmission Date: 20250717
  Serious: Yes (Death, Other)
  Sender: PFIZER
  Company Number: None

PATIENT
  Age: 76 Year
  Sex: Female
  Weight: 48 kg

DRUGS (3)
  1. TRANEXAMIC ACID [Suspect]
     Active Substance: TRANEXAMIC ACID
     Indication: Prophylaxis
     Route: 042
     Dates: start: 20250515, end: 20250515
  2. MIDAZOLAM [Concomitant]
     Active Substance: MIDAZOLAM
     Indication: Bronchoscopy
     Dates: start: 20250515, end: 20250515
  3. FENTANYL [Concomitant]
     Active Substance: FENTANYL
     Indication: Bronchoscopy
     Dates: start: 20250515, end: 20250515

REACTIONS (3)
  - Cerebral thrombosis [Fatal]
  - Basilar artery thrombosis [Fatal]
  - Seizure [Unknown]

NARRATIVE: CASE EVENT DATE: 20250515
